FAERS Safety Report 8218128-7 (Version None)
Quarter: 2012Q1

REPORT INFORMATION
  Report Type: 
  Country: None (occurrence: None)
  Receive Date: 20120319
  Receipt Date: 20120305
  Transmission Date: 20120608
  Serious: Yes (Other)
  Sender: FDA-Public Use
  Company Number: FR-ROCHE-1049591

PATIENT
  Age: 66 Year
  Sex: Female

DRUGS (2)
  1. CORTICOSTEROID (UNK INGREDIENTS) [Concomitant]
  2. MABTHERA [Suspect]
     Indication: RHEUMATOID VASCULITIS
     Dosage: 2 INFUSIONS

REACTIONS (2)
  - DEVICE RELATED INFECTION [None]
  - FISTULA [None]
